FAERS Safety Report 10764433 (Version 1)
Quarter: 2015Q1

REPORT INFORMATION
  Report Type: Report from Study
  Country: KR (occurrence: KR)
  Receive Date: 20150205
  Receipt Date: 20150205
  Transmission Date: 20150721
  Serious: Yes (Hospitalization)
  Sender: FDA-Public Use
  Company Number: KR-AMGEN-KORCT2015010243

PATIENT
  Age: 52 Year
  Sex: Female
  Weight: 81.6 kg

DRUGS (6)
  1. DOCETAXEL. [Concomitant]
     Active Substance: DOCETAXEL
     Dosage: 139.5 MG, UNK
     Route: 042
     Dates: start: 20141230, end: 20141230
  2. GABAPENTIN. [Concomitant]
     Active Substance: GABAPENTIN
     Dosage: 300 MG, UNK
     Route: 048
     Dates: start: 20141230
  3. CYCLOPHOSPHAMIDE. [Concomitant]
     Active Substance: CYCLOPHOSPHAMIDE
     Dosage: 930 MG, UNK
     Route: 042
     Dates: start: 20141230, end: 20141230
  4. PEGFILGRASTIM [Suspect]
     Active Substance: PEGFILGRASTIM
     Indication: NEUTROPENIA
     Dosage: 6 MG, Q3WK
     Route: 058
     Dates: start: 20141231
  5. DOXORUBICIN [Concomitant]
     Active Substance: DOXORUBICIN
     Dosage: 93 MG, UNK
     Route: 042
     Dates: start: 20141230, end: 20141230
  6. GRANISETRON [Concomitant]
     Active Substance: GRANISETRON
     Dosage: 34.3 MG, UNK
     Route: 065
     Dates: start: 20141229

REACTIONS (2)
  - Neutropenia [Recovered/Resolved]
  - Diarrhoea [Recovered/Resolved]

NARRATIVE: CASE EVENT DATE: 20150106
